FAERS Safety Report 5652421-7 (Version None)
Quarter: 2008Q1

REPORT INFORMATION
  Report Type: 
  Country: None (occurrence: None)
  Receive Date: 20080305
  Receipt Date: 20080305
  Transmission Date: 20080703
  Serious: Yes (Other)
  Sender: FDA-Public Use
  Company Number: None

PATIENT
  Sex: Female
  Weight: 63.5036 kg

DRUGS (2)
  1. CHANTIX [Suspect]
     Indication: SMOKING CESSATION THERAPY
     Dosage: ONE TABLET TWICE A DAY PO
     Route: 048
     Dates: start: 20070716, end: 20071116
  2. ASPIRIN [Concomitant]

REACTIONS (4)
  - AMNESIA [None]
  - DEPRESSION [None]
  - FEELING ABNORMAL [None]
  - SUICIDAL IDEATION [None]
